FAERS Safety Report 9116145 (Version 1)
Quarter: 2013Q1

REPORT INFORMATION
  Report Type: Spontaneous
  Country: US (occurrence: US)
  Receive Date: 20130225
  Receipt Date: 20130225
  Transmission Date: 20140127
  Serious: No
  Sender: FDA-Public Use
  Company Number: US-009507513-1302USA011544

PATIENT
  Sex: Female

DRUGS (1)
  1. CORICIDIN HBP COLD AND FLU [Suspect]
     Indication: COUGH
     Dosage: UNK, ONCE
     Route: 048
     Dates: start: 20130115

REACTIONS (2)
  - Anxiety [Not Recovered/Not Resolved]
  - Claustrophobia [Not Recovered/Not Resolved]
